FAERS Safety Report 9973422 (Version 2)
Quarter: 2014Q2

REPORT INFORMATION
  Report Type: Spontaneous
  Country: JP (occurrence: JP)
  Receive Date: 20140306
  Receipt Date: 20140411
  Transmission Date: 20141212
  Serious: Yes (Life-Threatening, Hospitalization)
  Sender: FDA-Public Use
  Company Number: JP-PFIZER INC-2014059136

PATIENT
  Age: 81 Year
  Sex: Male
  Weight: 62.5 kg

DRUGS (14)
  1. SUTENT [Suspect]
     Indication: GASTROINTESTINAL STROMAL TUMOUR
     Dosage: 50 MG, 1X/DAY
     Route: 048
     Dates: start: 20130928, end: 20131004
  2. SUTENT [Suspect]
     Dosage: 37.5 MG, 1X/DAY
     Route: 048
     Dates: start: 20131005, end: 20131011
  3. SUTENT [Suspect]
     Dosage: 25 MG, 1X/DAY
     Route: 048
     Dates: start: 20131102, end: 20131115
  4. SUTENT [Suspect]
     Dosage: 25 MG, 1X/DAY
     Route: 048
     Dates: start: 20131208, end: 20131221
  5. SUTENT [Suspect]
     Dosage: 25 MG, 1X/DAY
     Route: 048
     Dates: start: 20140111, end: 20140125
  6. SUTENT [Suspect]
     Dosage: 25 MG, 1X/DAY
     Route: 048
     Dates: start: 20140201, end: 20140204
  7. ADALAT CR [Concomitant]
     Dosage: UNK
  8. LUPRAC [Concomitant]
     Dosage: UNK
  9. HARNAL D [Concomitant]
     Dosage: UNK
  10. TAKEPRON OD [Concomitant]
     Dosage: UNK
  11. MYSLEE [Concomitant]
     Dosage: UNK
  12. MOHRUS [Concomitant]
     Dosage: UNK
     Route: 061
  13. KENALOG [Concomitant]
     Dosage: UNK
     Route: 061
  14. LYRICA [Concomitant]
     Dosage: UNK
     Route: 048

REACTIONS (3)
  - Disseminated intravascular coagulation [Recovered/Resolved]
  - Febrile neutropenia [Recovered/Resolved]
  - Sepsis [Recovered/Resolved]
